FAERS Safety Report 26017525 (Version 2)
Quarter: 2025Q4

REPORT INFORMATION
  Report Type: Spontaneous
  Country: US (occurrence: US)
  Receive Date: 20251110
  Receipt Date: 20251113
  Transmission Date: 20260117
  Serious: No
  Sender: ABBVIE
  Company Number: US-ABBVIE-6532840

PATIENT
  Sex: Female

DRUGS (1)
  1. BOTOX COSMETIC [Suspect]
     Active Substance: ONABOTULINUMTOXINA
     Indication: Skin wrinkling
     Dosage: TIME INTERVAL: AS NECESSARY: DOSE: 40 UNIT
     Route: 065
     Dates: start: 20251003, end: 20251003

REACTIONS (3)
  - Unevaluable event [Unknown]
  - Eyelid ptosis [Unknown]
  - Vision blurred [Unknown]
